FAERS Safety Report 4479872-0 (Version None)
Quarter: 2004Q3

REPORT INFORMATION
  Report Type: 
  Country: None (occurrence: None)
  Receive Date: 20040923
  Receipt Date: 20040726
  Transmission Date: 20050211
  Serious: No
  Sender: FDA-Public Use
  Company Number: USA040465131

PATIENT
  Age: 65 Year
  Sex: Female

DRUGS (3)
  1. EVISTA [Suspect]
     Indication: OSTEOPOROSIS
     Dates: start: 20031101
  2. FORTEO [Suspect]
     Indication: OSTEOPOROSIS
     Dates: start: 20040723
  3. SYNTHROID [Concomitant]

REACTIONS (7)
  - ABDOMINAL PAIN UPPER [None]
  - ASTHENIA [None]
  - DYSPNOEA [None]
  - FEELING ABNORMAL [None]
  - HEADACHE [None]
  - MUSCLE CRAMP [None]
  - NAUSEA [None]
